FAERS Safety Report 4661791-8 (Version None)
Quarter: 2005Q2

REPORT INFORMATION
  Report Type: 
  Country: None (occurrence: None)
  Receive Date: 20050513
  Receipt Date: 20050217
  Transmission Date: 20051028
  Serious: Yes (Disabling)
  Sender: FDA-Public Use
  Company Number: 2005UW02751

PATIENT
  Age: 58 Year
  Sex: Female

DRUGS (3)
  1. CRESTOR [Suspect]
     Indication: BLOOD CHOLESTEROL INCREASED
     Route: 048
     Dates: start: 20040601, end: 20040601
  2. ALTACE [Concomitant]
     Route: 048
     Dates: start: 20040101, end: 20040601
  3. ALTACE [Concomitant]
     Route: 048
     Dates: start: 20040901

REACTIONS (2)
  - COLITIS [None]
  - DIARRHOEA [None]
